FAERS Safety Report 6998925-6 (Version None)
Quarter: 2010Q3

REPORT INFORMATION
  Report Type: 
  Country: None (occurrence: None)
  Receive Date: 20100920
  Receipt Date: 20070605
  Transmission Date: 20110219
  Serious: Yes (Other)
  Sender: FDA-Public Use
  Company Number: US-ASTRAZENECA-2006UW22464

PATIENT
  Age: 43 Year
  Sex: Male
  Weight: 104.8 kg

DRUGS (18)
  1. SEROQUEL [Suspect]
     Indication: DEPRESSION
     Route: 048
     Dates: start: 19990101
  2. SEROQUEL [Suspect]
     Indication: PSYCHOTIC DISORDER
     Route: 048
     Dates: start: 19990101
  3. SEROQUEL [Suspect]
     Indication: AFFECTIVE DISORDER
     Route: 048
     Dates: start: 19990101
  4. SEROQUEL [Suspect]
     Dosage: 200 MG TWICE A DAY, 200 MG THREE TIMES A DAY
     Route: 048
     Dates: start: 20010110
  5. SEROQUEL [Suspect]
     Dosage: 200 MG TWICE A DAY, 200 MG THREE TIMES A DAY
     Route: 048
     Dates: start: 20010110
  6. SEROQUEL [Suspect]
     Dosage: 200 MG TWICE A DAY, 200 MG THREE TIMES A DAY
     Route: 048
     Dates: start: 20010110
  7. ABILIFY [Concomitant]
  8. CLOZARIL [Concomitant]
  9. RISPERDAL [Concomitant]
  10. ZYPREXA [Concomitant]
  11. ZESTRIL [Concomitant]
     Indication: HYPERTENSION
     Dates: start: 19990129
  12. NEURONTIN [Concomitant]
     Indication: AFFECTIVE DISORDER
     Dates: start: 20010110
  13. NEURONTIN [Concomitant]
     Indication: DEPRESSION
     Dates: start: 20010110
  14. NEURONTIN [Concomitant]
     Indication: MIGRAINE
     Dates: start: 20010110
  15. ZOLOFT [Concomitant]
     Indication: PAIN
     Dosage: 100 - 200 MG
     Dates: start: 20010110
  16. ZOLOFT [Concomitant]
     Indication: HEADACHE
     Dosage: 100 - 200 MG
     Dates: start: 20010110
  17. PROPRANOLOL [Concomitant]
     Indication: MIGRAINE
     Dosage: 30 - 40 MG
     Dates: start: 20010110
  18. PROPRANOLOL [Concomitant]
     Indication: AFFECTIVE DISORDER
     Dosage: 30 - 40 MG
     Dates: start: 20010110

REACTIONS (4)
  - BLOOD GLUCOSE INCREASED [None]
  - DIABETES MELLITUS [None]
  - DIABETES MELLITUS INADEQUATE CONTROL [None]
  - TYPE 2 DIABETES MELLITUS [None]
